FAERS Safety Report 8957565 (Version 2)
Quarter: 2013Q1

REPORT INFORMATION
  Report Type: Spontaneous
  Country: DK (occurrence: FR)
  Receive Date: 20121210
  Receipt Date: 20130315
  Transmission Date: 20140127
  Serious: Yes (Other)
  Sender: FDA-Public Use
  Company Number: FR-FRI-1000040914

PATIENT
  Age: 29 Year
  Sex: Male

DRUGS (2)
  1. ESCITALOPRAM [Suspect]
     Indication: MAJOR DEPRESSION
     Dosage: 5 MG
     Route: 048
     Dates: start: 20120623
  2. METHADONE [Concomitant]
     Indication: DRUG DEPENDENCE

REACTIONS (3)
  - Suicide attempt [Recovered/Resolved]
  - Road traffic accident [Unknown]
  - Homicide [Unknown]
